FAERS Safety Report 8120016-1 (Version None)
Quarter: 2012Q1

REPORT INFORMATION
  Report Type: 
  Country: None (occurrence: None)
  Receive Date: 20120207
  Receipt Date: 20120119
  Transmission Date: 20120608
  Serious: Yes (Life-Threatening, Hospitalization, Other)
  Sender: FDA-Public Use
  Company Number: FR-PFIZER INC-K201001287

PATIENT
  Age: 56 Year
  Sex: Female

DRUGS (18)
  1. DIGITOXIN INJ [Suspect]
     Indication: ATRIAL FIBRILLATION
     Dosage: 0.105 MG ON MONDAY AND 0.07 MG FROM TUESDAY TO SUNDAY
     Route: 048
     Dates: start: 20040101, end: 20080601
  2. ALLOPURINOL [Concomitant]
     Dosage: UNK
  3. PANTHENOL [Concomitant]
     Dosage: UNK
  4. SIMVASTATIN [Concomitant]
     Dosage: UNK
  5. AEQUAMEN [Concomitant]
     Dosage: UNK
  6. ALTACE [Suspect]
     Indication: HYPERTENSION
     Dosage: 5 MG, 2X/DAY
     Route: 048
  7. NEXIUM [Concomitant]
     Dosage: UNK
  8. DOXAZOSIN [Suspect]
     Indication: HYPERTENSION
     Dosage: 4 MG, 2X/DAY
     Route: 048
  9. DIGITOXIN INJ [Suspect]
     Dosage: UNK
     Route: 048
     Dates: start: 20080608
  10. PHOS-EX [Concomitant]
     Dosage: UNK
  11. LAXOBERAL [Concomitant]
     Dosage: UNK
     Dates: end: 20080601
  12. ENOXAPARIN SODIUM [Concomitant]
     Dosage: UNK
     Dates: end: 20080601
  13. BISOPROLOL FUMARATE [Suspect]
     Indication: CORONARY ARTERY DISEASE
     Dosage: 5 MG, 2X/DAY
     Route: 048
     Dates: start: 19870101, end: 20080601
  14. BISOPROLOL FUMARATE [Suspect]
     Dosage: UNK MG, BID
     Route: 048
     Dates: start: 20080608
  15. RESTEX [Concomitant]
     Dosage: UNK
  16. RENAGEL [Concomitant]
     Dosage: UNK
  17. DEKRISTOL [Concomitant]
     Dosage: UNK
  18. ELUTIT-CALCIUM [Concomitant]
     Dosage: UNK
     Dates: end: 20080601

REACTIONS (8)
  - ASTHENIA [None]
  - ELECTROCARDIOGRAM T WAVE INVERSION [None]
  - ATRIAL FIBRILLATION [None]
  - SINOATRIAL BLOCK [None]
  - BRADYCARDIA [None]
  - TACHYARRHYTHMIA [None]
  - DIZZINESS [None]
  - HYPOTENSION [None]
